FAERS Safety Report 12750162 (Version 1)
Quarter: 2016Q3

REPORT INFORMATION
  Report Type: Spontaneous
  Country: US (occurrence: US)
  Receive Date: 20160916
  Receipt Date: 20160916
  Transmission Date: 20161109
  Serious: No
  Sender: FDA-Public Use
  Company Number: US-BIOGEN-2016BI00288717

PATIENT
  Sex: Female

DRUGS (1)
  1. AVONEX [Suspect]
     Active Substance: INTERFERON BETA-1A
     Indication: MULTIPLE SCLEROSIS
     Route: 030
     Dates: start: 19980101, end: 19980831

REACTIONS (15)
  - Headache [Recovered/Resolved with Sequelae]
  - Pain in jaw [Unknown]
  - Neuralgia [Not Recovered/Not Resolved]
  - Facial pain [Recovered/Resolved with Sequelae]
  - Muscle spasms [Not Recovered/Not Resolved]
  - Fall [Recovered/Resolved with Sequelae]
  - Peroneal nerve palsy [Recovered/Resolved with Sequelae]
  - Back pain [Recovered/Resolved with Sequelae]
  - Fatigue [Recovered/Resolved with Sequelae]
  - Aphasia [Not Recovered/Not Resolved]
  - Ear pain [Recovered/Resolved with Sequelae]
  - Neck pain [Recovered/Resolved with Sequelae]
  - Hyperreflexia [Recovered/Resolved with Sequelae]
  - Paraesthesia [Recovered/Resolved with Sequelae]
  - Stress [Recovered/Resolved with Sequelae]
